FAERS Safety Report 6446112-2 (Version None)
Quarter: 2009Q4

REPORT INFORMATION
  Report Type: 
  Country: None (occurrence: None)
  Receive Date: 20091118
  Receipt Date: 20091118
  Transmission Date: 20100525
  Serious: No
  Sender: FDA-Public Use
  Company Number: None

PATIENT
  Age: 20 Year
  Sex: Female
  Weight: 117.5 kg

DRUGS (1)
  1. AUGMENTIN [Suspect]
     Dates: start: 20091013

REACTIONS (2)
  - SWELLING FACE [None]
  - THROAT TIGHTNESS [None]
